FAERS Safety Report 4870094-8 (Version None)
Quarter: 2005Q4

REPORT INFORMATION
  Report Type: 
  Country: None (occurrence: None)
  Receive Date: 20051227
  Receipt Date: 20051219
  Transmission Date: 20060501
  Serious: Yes (Hospitalization)
  Sender: FDA-Public Use
  Company Number: 236361K05USA

PATIENT
  Age: 62 Year
  Sex: Female

DRUGS (1)
  1. REBIF [Suspect]
     Indication: MULTIPLE SCLEROSIS
     Dosage: 44 MCG, 3 IN 1 WEEKS, SUBCUTANEOUS
     Route: 058
     Dates: start: 20051027, end: 20051201

REACTIONS (3)
  - DEPRESSED LEVEL OF CONSCIOUSNESS [None]
  - MALAISE [None]
  - RENAL DISORDER [None]
